FAERS Safety Report 8357377-4 (Version None)
Quarter: 2012Q2

REPORT INFORMATION
  Report Type: 
  Country: None (occurrence: None)
  Receive Date: 20120514
  Receipt Date: 20120510
  Transmission Date: 20120825
  Serious: Yes (Death, Hospitalization, Other)
  Sender: FDA-Public Use
  Company Number: BR-BAYER-2012-017350

PATIENT
  Age: 43 Year
  Sex: Male

DRUGS (9)
  1. LAMIVUDINE (EPIVIR HBV) [Concomitant]
     Indication: HIV INFECTION
     Dosage: 2 DF, QD
     Route: 048
     Dates: start: 19960101
  2. TENOFOVIR [Concomitant]
     Indication: HIV INFECTION
     Dosage: 4 DF, QD
     Route: 048
     Dates: start: 20030101
  3. INFOVERTIDA [Concomitant]
     Indication: HIV INFECTION
     Dosage: UNK
     Route: 058
     Dates: start: 20090101
  4. NEXAVAR [Suspect]
     Indication: HEPATIC NEOPLASM MALIGNANT
     Dosage: 200 MG, BID
     Route: 048
     Dates: start: 20120115, end: 20120129
  5. ANTIVIRALS FOR SYSTEMIC USE [Concomitant]
     Indication: HIV INFECTION
     Dosage: 2 DF, QD
     Route: 048
     Dates: start: 20080101
  6. MARAVIROC [Concomitant]
     Indication: HIV INFECTION
     Dosage: 2 DF, QD
     Route: 048
     Dates: start: 20080101
  7. NEXAVAR [Suspect]
     Dosage: 400 MG, BID
     Dates: start: 20120130
  8. RALTEGRAVIR [Concomitant]
     Indication: HIV INFECTION
     Dosage: 2 DF, QD
     Route: 048
     Dates: start: 20080101
  9. LOPINAVIR [Concomitant]
     Indication: HIV INFECTION
     Dosage: 1 DF, QD
     Route: 048

REACTIONS (4)
  - HYPERKALAEMIA [None]
  - BLISTER [None]
  - ACUTE MYOCARDIAL INFARCTION [None]
  - ARRHYTHMIA [None]
